FAERS Safety Report 8206511 (Version 2)
Quarter: 2013Q2

REPORT INFORMATION
  Report Type: Report from Study
  Country: JP (occurrence: JP)
  Receive Date: 20111028
  Receipt Date: 20130412
  Transmission Date: 20140414
  Serious: Yes (Other)
  Sender: FDA-Public Use
  Company Number: JP-SANOFI-AVENTIS-2011SA069895

PATIENT
  Sex: 0

DRUGS (3)
  1. DOCETAXEL [Suspect]
     Indication: GASTRIC CANCER
     Dosage: ON DAYS 1 AND 15
     Route: 065
  2. GIMERACIL/OTERACIL POTASSIUM/TEGAFUR [Suspect]
     Indication: GASTRIC CANCER
     Dosage: ON DAYS 1-7 AND 15-21
     Route: 065
  3. CPT-11 [Suspect]
     Indication: GASTRIC CANCER
     Route: 065

REACTIONS (1)
  - Toxicity to various agents [Unknown]
